FAERS Safety Report 4704064-7 (Version None)
Quarter: 2005Q2

REPORT INFORMATION
  Report Type: 
  Country: None (occurrence: None)
  Receive Date: 20050630
  Receipt Date: 20050517
  Transmission Date: 20051028
  Serious: Yes (Hospitalization)
  Sender: FDA-Public Use
  Company Number: GB-BRISTOL-MYERS SQUIBB COMPANY-12978896

PATIENT
  Age: 48 Year
  Sex: Male
  Weight: 50 kg

DRUGS (13)
  1. SUSTIVA [Suspect]
     Indication: HIV INFECTION
     Route: 048
     Dates: start: 20050213, end: 20050511
  2. ATAZANAVIR [Concomitant]
     Indication: HIV INFECTION
     Route: 048
     Dates: start: 20040523
  3. TENOFOVIR [Concomitant]
     Indication: HIV INFECTION
     Route: 048
     Dates: start: 20040213
  4. EMTRICITABINE [Concomitant]
     Indication: HIV INFECTION
     Dosage: STOPPED ON 04-MAR-2004 AND RESTARTED ON 23-SEPT-2004.
     Route: 048
     Dates: start: 20040213
  5. AUGMENTIN [Concomitant]
     Indication: PHARYNGEAL ULCERATION
     Route: 042
     Dates: start: 20040222, end: 20040223
  6. TAZOCIN [Concomitant]
     Indication: FEBRILE NEUTROPENIA
     Route: 042
     Dates: start: 20040223, end: 20040310
  7. TAZOCIN [Concomitant]
     Indication: PHARYNGEAL ULCERATION
     Route: 042
     Dates: start: 20040223, end: 20040310
  8. METRONIDAZOLE [Concomitant]
     Indication: PHARYNGEAL ULCERATION
     Route: 042
     Dates: start: 20040223, end: 20040304
  9. CIPROFLOXACIN [Concomitant]
     Indication: NEUTROPENIA
     Route: 048
     Dates: start: 20040310, end: 20040315
  10. VALACYCLOVIR HCL [Concomitant]
     Indication: PHARYNGEAL ULCERATION
     Route: 048
     Dates: start: 20040203, end: 20040225
  11. ACYCLOVIR [Concomitant]
     Indication: PHARYNGEAL ULCERATION
     Route: 048
     Dates: start: 20040225, end: 20040310
  12. FLUCONAZOLE [Concomitant]
     Indication: PHARYNGEAL ULCERATION
     Route: 048
     Dates: start: 20040127, end: 20040303
  13. DAPSONE [Concomitant]
     Indication: PROPHYLAXIS
     Route: 048
     Dates: start: 20040127

REACTIONS (2)
  - LIVER FUNCTION TEST ABNORMAL [None]
  - NEUTROPENIA [None]
